FAERS Safety Report 9812546 (Version 2)
Quarter: 2014Q1

REPORT INFORMATION
  Report Type: Spontaneous
  Country: FR (occurrence: FR)
  Receive Date: 20140113
  Receipt Date: 20140113
  Transmission Date: 20141002
  Serious: Yes (Other)
  Sender: FDA-Public Use
  Company Number: FR-BRISTOL-MYERS SQUIBB COMPANY-19842889

PATIENT
  Age: 9 Year
  Sex: Female
  Weight: 27 kg

DRUGS (1)
  1. ELISOR [Suspect]
     Indication: TYPE IIA HYPERLIPIDAEMIA
     Dosage: 10 MG TWICE WEEKLY FROM 14-NOV-2013.
     Route: 048
     Dates: start: 20131030, end: 20131209

REACTIONS (2)
  - Tendonitis [Not Recovered/Not Resolved]
  - Drug administration error [Unknown]
